FAERS Safety Report 8451492-2 (Version None)
Quarter: 2012Q2

REPORT INFORMATION
  Report Type: 
  Country: None (occurrence: None)
  Receive Date: 20120620
  Receipt Date: 20120305
  Transmission Date: 20120825
  Serious: No
  Sender: FDA-Public Use
  Company Number: US-VERTEX PHARMACEUTICALS INC.-AE-2012-003151

PATIENT
  Sex: Female
  Weight: 74.91 kg

DRUGS (5)
  1. RETASIS [Concomitant]
  2. PEGASYS [Concomitant]
     Indication: HEPATITIS C
     Dates: start: 20120124
  3. RIBAVIRIN [Concomitant]
     Indication: HEPATITIS C
     Route: 048
     Dates: start: 20120124
  4. ALBUTEROL [Concomitant]
  5. INCIVEK [Suspect]
     Indication: HEPATITIS C
     Route: 048
     Dates: start: 20120124

REACTIONS (4)
  - COUGH [None]
  - DYSPNOEA [None]
  - GENITAL INFECTION FEMALE [None]
  - PRESYNCOPE [None]
